FAERS Safety Report 6815133-X (Version None)
Quarter: 2010Q3

REPORT INFORMATION
  Report Type: 
  Country: None (occurrence: None)
  Receive Date: 20100702
  Receipt Date: 20100629
  Transmission Date: 20110219
  Serious: Yes (Death, Hospitalization, Other)
  Sender: FDA-Public Use
  Company Number: PHHY2010US28551

PATIENT
  Sex: Female
  Weight: 46.259 kg

DRUGS (1)
  1. EXJADE [Suspect]
     Dosage: 1850 MG
     Route: 048
     Dates: start: 20091112, end: 20100105

REACTIONS (6)
  - ABDOMINAL PAIN [None]
  - DEATH [None]
  - FALL [None]
  - HAEMORRHAGE [None]
  - HIP FRACTURE [None]
  - SEPSIS [None]
